FAERS Safety Report 16299157 (Version 2)
Quarter: 2019Q2

REPORT INFORMATION
  Report Type: Spontaneous
  Country: US (occurrence: US)
  Receive Date: 20190510
  Receipt Date: 20190517
  Transmission Date: 20190711
  Serious: Yes (Hospitalization, Other)
  Sender: FDA-Public Use
  Company Number: US-PFIZER INC-2019193855

PATIENT
  Age: 70 Year
  Sex: Male
  Weight: 80 kg

DRUGS (16)
  1. FENTANYL. [Concomitant]
     Active Substance: FENTANYL
     Indication: INDUCTION OF ANAESTHESIA
     Dosage: 100 UG, UNK
  2. TRANEXAMIC ACID. [Concomitant]
     Active Substance: TRANEXAMIC ACID
     Dosage: UNK (BOLUS AND INFUSION FOR A TOTAL DOSE OF 1520 MG)
  3. SEVOFLURANE. [Concomitant]
     Active Substance: SEVOFLURANE
     Dosage: UNK (0.6% TO 0.7% EXHALED CONCENTRATIONS)
  4. SUCCINYLCHOLINE BROMIDE [Concomitant]
     Active Substance: SUXAMETHONIUM BROMIDE
     Indication: INDUCTION OF ANAESTHESIA
     Dosage: 100 MG, UNK
  5. PROPOFOL. [Suspect]
     Active Substance: PROPOFOL
     Indication: INDUCTION OF ANAESTHESIA
     Dosage: 150 MG, UNK
  6. PROPOFOL. [Suspect]
     Active Substance: PROPOFOL
     Dosage: (TITRATED TO 100 TO 160 UG/KG/MIN)
  7. CEFAZOLIN [Concomitant]
     Active Substance: CEFAZOLIN
     Dosage: 2000 MG, UNK
  8. DEXAMETHASONE. [Concomitant]
     Active Substance: DEXAMETHASONE
     Dosage: 10 MG, UNK
  9. VANCOMYCIN [Concomitant]
     Active Substance: VANCOMYCIN
     Dosage: 1250 MG, UNK
  10. SEVOFLURANE. [Concomitant]
     Active Substance: SEVOFLURANE
     Indication: MAINTENANCE OF ANAESTHESIA
     Dosage: UNK (AT EXHALED CONCENTRATIONS OF 1.2% TO 1.4%, WHICH WERE BRIEFLY INCREASED TO 2.8%)
  11. TRANEXAMIC ACID. [Concomitant]
     Active Substance: TRANEXAMIC ACID
     Dosage: UNK (BOLUS AND INFUSION FOR A TOTAL DOSE OF 1520 MG)
  12. MIDAZOLAM [Concomitant]
     Active Substance: MIDAZOLAM HYDROCHLORIDE
     Dosage: 5 MG, UNK (IN INCREMENTAL DOSES)
  13. KETAMINE [Concomitant]
     Active Substance: KETAMINE
     Dosage: 100 MG, UNK (IN INCREMENTAL DOSES)
  14. LIDOCAINE. [Concomitant]
     Active Substance: LIDOCAINE
     Indication: INDUCTION OF ANAESTHESIA
     Dosage: 100 MG, UNK
  15. PROPOFOL. [Suspect]
     Active Substance: PROPOFOL
     Dosage: (TITRATED TO 100 TO 160 UG/KG/MIN)
  16. REMIFENTANIL [Concomitant]
     Active Substance: REMIFENTANIL
     Dosage: INFUSION TITRATED TO 0.1 TO 0.2 UG/KG/MIN

REACTIONS (5)
  - Blindness [Recovering/Resolving]
  - Metabolic acidosis [Unknown]
  - Optic ischaemic neuropathy [Recovering/Resolving]
  - Delayed recovery from anaesthesia [Recovered/Resolved]
  - Mean arterial pressure decreased [Recovered/Resolved]
